FAERS Safety Report 7119234-0 (Version None)
Quarter: 2010Q4

REPORT INFORMATION
  Report Type: 
  Country: None (occurrence: None)
  Receive Date: 20101028
  Receipt Date: 20100826
  Transmission Date: 20110411
  Serious: Yes (Hospitalization)
  Sender: FDA-Public Use
  Company Number: A-US2010-39359

PATIENT
  Age: 52 Year
  Sex: Female

DRUGS (5)
  1. VELERI (EPOPROSTENOL SODIUM) INJECTION [Suspect]
     Indication: PULMONARY HYPERTENSION
     Dosage: 10 NG/KG, PER MIN, IV DRIP
     Route: 041
     Dates: start: 20100813
  2. ARBRISENTAN (AMBRISENTAN) [Concomitant]
  3. CLOPIDOGREL [Concomitant]
  4. ASPIRIN [Concomitant]
  5. LASIX [Concomitant]

REACTIONS (4)
  - CHILLS [None]
  - DEHYDRATION [None]
  - DIZZINESS [None]
  - HYPOTENSION [None]
